FAERS Safety Report 9891727 (Version 3)
Quarter: 2015Q1

REPORT INFORMATION
  Report Type: Spontaneous
  Country: SE (occurrence: SE)
  Receive Date: 20140212
  Receipt Date: 20150317
  Transmission Date: 20150721
  Serious: Yes (Hospitalization, Disabling, Other)
  Sender: FDA-Public Use
  Company Number: PHHY2014SE015945

PATIENT
  Age: 38 Year
  Sex: Female
  Weight: 69 kg

DRUGS (4)
  1. LEVETIRACETAM. [Concomitant]
     Active Substance: LEVETIRACETAM
     Indication: EPILEPSY
     Route: 065
  2. GILENYA [Suspect]
     Active Substance: FINGOLIMOD HYDROCHLORIDE
     Indication: MULTIPLE SCLEROSIS
     Dosage: 0.5 MG, QD
     Route: 048
     Dates: start: 20111219, end: 20131004
  3. SELEXID [Concomitant]
     Active Substance: AMDINOCILLIN PIVOXIL HYDROCHLORIDE
     Indication: URINARY TRACT INFECTION
     Dosage: 3 DAYS
     Route: 065
  4. GLATIRAMER ACETATE. [Concomitant]
     Active Substance: GLATIRAMER ACETATE
     Indication: PRODUCT USED FOR UNKNOWN INDICATION
     Route: 065

REACTIONS (19)
  - Posterior reversible encephalopathy syndrome [Recovered/Resolved with Sequelae]
  - Apraxia [Unknown]
  - Photophobia [Unknown]
  - Somnolence [Unknown]
  - Condition aggravated [Unknown]
  - Electroencephalogram abnormal [Unknown]
  - Visual impairment [Recovered/Resolved]
  - Urinary tract infection [Unknown]
  - Disorientation [Recovering/Resolving]
  - Cognitive disorder [Recovering/Resolving]
  - Speech disorder [Recovered/Resolved]
  - Lethargy [Unknown]
  - Malaise [Recovering/Resolving]
  - Epilepsy [Unknown]
  - Hallucination, visual [Recovered/Resolved]
  - Delusion [Unknown]
  - Quadranopia [Not Recovered/Not Resolved]
  - Headache [Unknown]
  - Confusional state [Not Recovered/Not Resolved]

NARRATIVE: CASE EVENT DATE: 20130917
